FAERS Safety Report 8552933-2 (Version None)
Quarter: 2012Q3

REPORT INFORMATION
  Report Type: 
  Country: None (occurrence: None)
  Receive Date: 20120731
  Receipt Date: 20120723
  Transmission Date: 20120928
  Serious: Yes (Other)
  Sender: FDA-Public Use
  Company Number: US-US-EMD SERONO, INC.-7024657

PATIENT
  Sex: Female
  Weight: 72 kg

DRUGS (1)
  1. REBIF [Suspect]
     Indication: MULTIPLE SCLEROSIS
     Route: 058
     Dates: start: 20100801

REACTIONS (4)
  - HAEMOGLOBIN DECREASED [None]
  - MENORRHAGIA [None]
  - HAEMATOCRIT DECREASED [None]
  - DYSMENORRHOEA [None]
